FAERS Safety Report 4342460-0 (Version None)
Quarter: 2004Q1

REPORT INFORMATION
  Report Type: 
  Country: None (occurrence: None)
  Receive Date: 20040213
  Receipt Date: 20031110
  Transmission Date: 20041129
  Serious: No
  Sender: FDA-Public Use
  Company Number: 347850

PATIENT
  Age: 39 Year
  Sex: Female
  Weight: 160 kg

DRUGS (2)
  1. PEGASYS [Suspect]
     Indication: HEPATITIS C
     Dosage: 1 PER WEEK INTRAMUSCULAR
     Route: 030
     Dates: start: 20030115
  2. COPEGUS [Suspect]
     Indication: HEPATITIS C
     Dosage: 2 PER DAY ORAL
     Route: 048
     Dates: start: 20030215, end: 20031215

REACTIONS (3)
  - BLISTER [None]
  - FATIGUE [None]
  - RASH [None]
